FAERS Safety Report 13612933 (Version 2)
Quarter: 2017Q2

REPORT INFORMATION
  Report Type: Spontaneous
  Country: US (occurrence: US)
  Receive Date: 20170605
  Receipt Date: 20170630
  Transmission Date: 20170830
  Serious: Yes (Other)
  Sender: FDA-Public Use
  Company Number: US-SUNOVION-2017SUN002308

PATIENT
  Age: 42 Year
  Sex: Female
  Weight: 104.3 kg

DRUGS (8)
  1. CYTOMEL [Concomitant]
     Active Substance: LIOTHYRONINE SODIUM
     Dosage: 15 ?G, QD
     Route: 048
  2. LAMOTRIGINE. [Concomitant]
     Active Substance: LAMOTRIGINE
     Dosage: 200 MG, BID
     Route: 048
  3. LATUDA [Suspect]
     Active Substance: LURASIDONE HYDROCHLORIDE
     Dosage: 60 MG, QD
     Route: 048
     Dates: start: 20170327, end: 20170405
  4. TRAZODONE [Concomitant]
     Active Substance: TRAZODONE HYDROCHLORIDE
     Dosage: 100 MG, HS
     Route: 048
  5. DISULFIRAM. [Concomitant]
     Active Substance: DISULFIRAM
     Dosage: 200 MG, QD
     Route: 048
  6. LATUDA [Suspect]
     Active Substance: LURASIDONE HYDROCHLORIDE
     Indication: BIPOLAR II DISORDER
     Dosage: 20 MG, QD
     Route: 048
     Dates: start: 20151210, end: 20170119
  7. LATUDA [Suspect]
     Active Substance: LURASIDONE HYDROCHLORIDE
     Dosage: 40 MG, QD
     Route: 048
     Dates: start: 20170120, end: 20170326
  8. GABAPENTIN. [Concomitant]
     Active Substance: GABAPENTIN
     Dosage: 300 MG, TID
     Route: 048

REACTIONS (8)
  - Body temperature fluctuation [Recovered/Resolved]
  - Off label use [Recovered/Resolved]
  - Neuroleptic malignant syndrome [Recovered/Resolved]
  - Muscle tightness [Recovered/Resolved]
  - Pain [Unknown]
  - Diarrhoea [Recovered/Resolved]
  - Urine output decreased [Recovered/Resolved]
  - Muscle spasms [Unknown]
